FAERS Safety Report 17019032 (Version 1)
Quarter: 2019Q4

REPORT INFORMATION
  Report Type: Spontaneous
  Country: US (occurrence: US)
  Receive Date: 20191112
  Receipt Date: 20191112
  Transmission Date: 20200122
  Serious: No
  Sender: FDA-Public Use
  Company Number: US-APOTEX-2019AP024170

PATIENT
  Age: 36 Year
  Sex: Female

DRUGS (3)
  1. LITHIUM. [Concomitant]
     Active Substance: LITHIUM
     Indication: MANIA
     Dosage: 900 MG, UNK DAILY
     Route: 065
  2. DELSYM [Concomitant]
     Active Substance: DEXTROMETHORPHAN
     Indication: PAIN
     Dosage: 120 MG, DAILY
     Route: 065
  3. OLANZAPINE. [Suspect]
     Active Substance: OLANZAPINE
     Indication: MANIA
     Dosage: 10 MG, Q.H.S.
     Route: 065

REACTIONS (1)
  - Metabolic disorder [Unknown]
